FAERS Safety Report 11121091 (Version 1)
Quarter: 2015Q2

REPORT INFORMATION
  Report Type: Spontaneous
  Country: ES (occurrence: ES)
  Receive Date: 20150519
  Receipt Date: 20150519
  Transmission Date: 20150821
  Serious: Yes (Other)
  Sender: FDA-Public Use
  Company Number: ES-009507513-1505ESP006485

PATIENT
  Age: 48 Year
  Sex: Male
  Weight: 70 kg

DRUGS (4)
  1. ECHINACEA (UNSPECIFIED) [Concomitant]
     Indication: NASOPHARYNGITIS
     Dosage: 1 CAPSULE A DAY
     Dates: start: 20121228, end: 20130104
  2. AUXINA A + E [Concomitant]
     Indication: PROPHYLAXIS
     Dosage: 1 CAPSULE A DAY
     Route: 048
     Dates: start: 20130128, end: 20130228
  3. PHARMATON COMPLEX [Concomitant]
     Indication: FATIGUE
     Dosage: 1 CAPSULE A DAY
     Dates: start: 20130122, end: 20130124
  4. NASONEX [Suspect]
     Active Substance: MOMETASONE FUROATE
     Indication: SINUSITIS
     Dosage: 50 MG ONCE A DAY THROUGH EACH NOSTRIL (AT NIGHT)
     Route: 055
     Dates: start: 20121227, end: 20130228

REACTIONS (2)
  - Increased viscosity of bronchial secretion [Not Recovered/Not Resolved]
  - Bronchial hyperreactivity [Recovered/Resolved with Sequelae]

NARRATIVE: CASE EVENT DATE: 20130214
